FAERS Safety Report 5794103-7 (Version None)
Quarter: 2008Q2

REPORT INFORMATION
  Report Type: 
  Country: None (occurrence: None)
  Receive Date: 20080627
  Receipt Date: 20080616
  Transmission Date: 20081010
  Serious: Yes (Other)
  Sender: FDA-Public Use
  Company Number: US-PFIZER INC-2008048288

PATIENT
  Sex: Male
  Weight: 68.5 kg

DRUGS (3)
  1. GEODON [Suspect]
     Indication: SCHIZOAFFECTIVE DISORDER
     Dates: start: 20080604, end: 20080611
  2. RISPERDAL [Concomitant]
  3. KLONOPIN [Concomitant]

REACTIONS (8)
  - FATIGUE [None]
  - IMMOBILE [None]
  - INSOMNIA [None]
  - MALAISE [None]
  - NASOPHARYNGITIS [None]
  - RESTLESSNESS [None]
  - SUICIDAL IDEATION [None]
  - TREMOR [None]
